FAERS Safety Report 7208990-9 (Version None)
Quarter: 2011Q1

REPORT INFORMATION
  Report Type: 
  Country: None (occurrence: None)
  Receive Date: 20110104
  Receipt Date: 20101221
  Transmission Date: 20110831
  Serious: Yes (Other)
  Sender: FDA-Public Use
  Company Number: PHHY2010TR86865

PATIENT
  Age: 11 Year
  Sex: Female

DRUGS (3)
  1. AMPICILLIN SODIUM/SULBACTAM SODIUM [Suspect]
     Indication: APPENDICITIS
     Dosage: UNK
  2. AMIKACIN [Suspect]
     Indication: APPENDICITIS
     Dosage: UNK
  3. CLINDAMYCIN [Suspect]
     Indication: APPENDICITIS
     Dosage: UNK

REACTIONS (5)
  - RASH ERYTHEMATOUS [None]
  - PYREXIA [None]
  - RASH PUSTULAR [None]
  - ACUTE GENERALISED EXANTHEMATOUS PUSTULOSIS [None]
  - RASH MACULO-PAPULAR [None]
